FAERS Safety Report 15199192 (Version 1)
Quarter: 2018Q3

REPORT INFORMATION
  Report Type: Spontaneous
  Country: JP (occurrence: JP)
  Receive Date: 20180725
  Receipt Date: 20180725
  Transmission Date: 20181010
  Serious: Yes (Other)
  Sender: FDA-Public Use
  Company Number: JP-ELI_LILLY_AND_COMPANY-JP201807010251

PATIENT
  Age: 83 Year
  Sex: Female
  Weight: 47 kg

DRUGS (9)
  1. ATORVASTATIN [Concomitant]
     Active Substance: ATORVASTATIN
  2. BETANIS [Concomitant]
     Active Substance: MIRABEGRON
  3. MAGNESIUM OXIDE. [Concomitant]
     Active Substance: MAGNESIUM OXIDE
  4. DULOXETINE HYDROCHLORIDE. [Suspect]
     Active Substance: DULOXETINE HYDROCHLORIDE
     Indication: PRODUCT USED FOR UNKNOWN INDICATION
     Dosage: 20 MG, BID
     Route: 048
  5. CLOPIDOGREL [Concomitant]
     Active Substance: CLOPIDOGREL BISULFATE
  6. CALFINA [Concomitant]
     Active Substance: ALFACALCIDOL
  7. AZELNIDIPINE [Concomitant]
     Active Substance: AZELNIDIPINE
  8. PICOSULFATE [Concomitant]
     Active Substance: SODIUM PICOSULFATE
  9. GLACTIV [Concomitant]
     Active Substance: SITAGLIPTIN

REACTIONS (3)
  - Off label use [Not Recovered/Not Resolved]
  - Hypokalaemia [Unknown]
  - Blood creatinine increased [Unknown]

NARRATIVE: CASE EVENT DATE: 201807
